FAERS Safety Report 15935863 (Version 2)
Quarter: 2019Q1

REPORT INFORMATION
  Report Type: Report from Study
  Country: GB (occurrence: GB)
  Receive Date: 20190208
  Receipt Date: 20190221
  Transmission Date: 20190417
  Serious: Yes (Hospitalization, Other)
  Sender: FDA-Public Use
  Company Number: GB-TEVA-2019-GB-1008172

PATIENT
  Age: 72 Year
  Sex: Female

DRUGS (22)
  1. RAMIPRIL. [Concomitant]
     Active Substance: RAMIPRIL
     Dosage: 5 MILLIGRAM DAILY;
     Route: 048
     Dates: end: 20160721
  2. FLUCONAZOLE. [Concomitant]
     Active Substance: FLUCONAZOLE
     Indication: ORAL PAIN
     Dosage: 50 MILLIGRAM DAILY;
     Route: 048
     Dates: start: 20180831, end: 20180907
  3. LANSOPRAZOLE. [Concomitant]
     Active Substance: LANSOPRAZOLE
     Dosage: 30 MILLIGRAM DAILY;
     Route: 048
     Dates: start: 20170922
  4. METOCLOPRAMIDE. [Concomitant]
     Active Substance: METOCLOPRAMIDE
     Indication: NAUSEA
     Route: 048
     Dates: start: 20180831
  5. TRASTUZUMAB. [Suspect]
     Active Substance: TRASTUZUMAB
     Indication: BREAST CANCER METASTATIC
     Route: 058
     Dates: start: 20160527
  6. GABAPENTIN. [Concomitant]
     Active Substance: GABAPENTIN
     Route: 048
     Dates: start: 20161118
  7. DEXAMETHASONE. [Concomitant]
     Active Substance: DEXAMETHASONE
     Indication: HEADACHE
     Dosage: 4 MILLIGRAM DAILY;
     Route: 048
     Dates: start: 20170922, end: 20171006
  8. TRIMETHOPRIM. [Concomitant]
     Active Substance: TRIMETHOPRIM
     Dosage: 200 MILLIGRAM DAILY;
     Route: 048
     Dates: end: 20180205
  9. SANDO K [Concomitant]
     Dosage: 1 MILLIGRAM DAILY;
     Route: 048
     Dates: start: 20160721, end: 20160724
  10. SIMVADOR [Concomitant]
     Active Substance: SIMVASTATIN
     Dosage: 40 MILLIGRAM DAILY;
     Route: 048
  11. CLARITHROMYCIN. [Concomitant]
     Active Substance: CLARITHROMYCIN
     Dosage: 500 MILLIGRAM DAILY;
     Route: 048
     Dates: start: 20180420
  12. AMITRIPTYLINE [Concomitant]
     Active Substance: AMITRIPTYLINE
     Indication: HEADACHE
     Dosage: 50 MILLIGRAM DAILY;
     Route: 048
     Dates: start: 20170922
  13. ALENDRONIC ACID [Concomitant]
     Active Substance: ALENDRONIC ACID
     Route: 048
  14. CITALOPRAM [Concomitant]
     Active Substance: CITALOPRAM HYDROBROMIDE
     Indication: DEPRESSION
     Dosage: 10 MILLIGRAM DAILY;
     Route: 048
  15. TRIMETHOPRIM. [Concomitant]
     Active Substance: TRIMETHOPRIM
     Dosage: 200 MILLIGRAM DAILY;
     Route: 048
     Dates: start: 20181116, end: 20181123
  16. AMLODIPINE [Concomitant]
     Active Substance: AMLODIPINE BESYLATE
     Dosage: 5 MILLIGRAM DAILY;
     Route: 048
     Dates: start: 20160725
  17. CAPECITABINE. [Suspect]
     Active Substance: CAPECITABINE
     Indication: BREAST CANCER METASTATIC
     Dosage: 1450 MILLIGRAM DAILY;
     Route: 048
     Dates: start: 20160527, end: 20160916
  18. CAPECITABINE. [Suspect]
     Active Substance: CAPECITABINE
     Route: 048
     Dates: start: 20161007, end: 20161209
  19. TAMOXIFEN [Suspect]
     Active Substance: TAMOXIFEN
     Indication: BREAST CANCER METASTATIC
     Dosage: 20 MILLIGRAM DAILY;
     Route: 048
     Dates: start: 20160316
  20. ASPIRIN. [Concomitant]
     Active Substance: ASPIRIN
     Dosage: 75 MILLIGRAM DAILY;
     Route: 048
  21. CHOLECALCIFEROL [Concomitant]
     Active Substance: CHOLECALCIFEROL
     Dosage: 400 MILLIGRAM DAILY;
     Route: 048
  22. NYSTATIN. [Concomitant]
     Active Substance: NYSTATIN
     Indication: ORAL PAIN
     Dosage: 1 GTT DAILY;
     Route: 048
     Dates: start: 20180831, end: 20180914

REACTIONS (9)
  - Diarrhoea [Recovered/Resolved]
  - Abdominal pain [Recovered/Resolved]
  - Back pain [Recovered/Resolved]
  - Rash [Not Recovered/Not Resolved]
  - Neuropathy peripheral [Recovered/Resolved]
  - Swollen tongue [Recovered/Resolved]
  - Insomnia [Not Recovered/Not Resolved]
  - Vomiting [Recovered/Resolved]
  - Lethargy [Recovered/Resolved]

NARRATIVE: CASE EVENT DATE: 20160701
